FAERS Safety Report 10076046 (Version 1)
Quarter: 2014Q2

REPORT INFORMATION
  Report Type: Spontaneous
  Country: US (occurrence: None)
  Receive Date: 20140410
  Receipt Date: 20140410
  Transmission Date: 20141212
  Serious: Yes (Disabling, Other)
  Sender: FDA-Public Use
  Company Number: AUR-APL-2014-04163

PATIENT
  Age: 79 Year
  Sex: Male

DRUGS (6)
  1. LEVETIRACETAM [Suspect]
     Indication: CONVULSION
     Route: 048
     Dates: start: 200802
  2. DILANTIN [Suspect]
     Indication: CONVULSION
     Route: 048
  3. METFORMIN (METFORMIN) [Concomitant]
  4. NORVASC (AMLODIPINE BESILATE) [Concomitant]
  5. ZOCOR (SIMVASTATIN) [Concomitant]
  6. LOPRESSOR (METOPROLOL TARTRATE) [Concomitant]

REACTIONS (4)
  - Balance disorder [None]
  - Memory impairment [None]
  - Walking aid user [None]
  - Hypersomnia [None]
